FAERS Safety Report 7812630-5 (Version None)
Quarter: 2011Q4

REPORT INFORMATION
  Report Type: 
  Country: None (occurrence: None)
  Receive Date: 20111013
  Receipt Date: 20110705
  Transmission Date: 20120403
  Serious: No
  Sender: FDA-Public Use
  Company Number: US-NOVEN-11US002743

PATIENT
  Sex: Male
  Weight: 106.58 kg

DRUGS (8)
  1. LANTUS [Concomitant]
     Indication: DIABETES MELLITUS
     Route: 058
  2. LISINOPRIL [Concomitant]
     Indication: PRODUCT USED FOR UNKNOWN INDICATION
     Route: 048
  3. FENTANYL [Suspect]
     Indication: ARTHRITIS
     Dosage: 100 UG/HOUR, EVERY 72 HOURS
     Route: 062
     Dates: start: 20110702
  4. RELPAX [Concomitant]
     Indication: MIGRAINE
     Dosage: 40 MG, PRN
     Route: 048
  5. VITAMIN D [Concomitant]
     Indication: PRODUCT USED FOR UNKNOWN INDICATION
     Route: 048
  6. HUMALOG [Concomitant]
     Indication: DIABETES MELLITUS
     Route: 058
  7. PRAVASTAN [Concomitant]
     Indication: PRODUCT USED FOR UNKNOWN INDICATION
     Route: 048
  8. PERCOCET [Concomitant]
     Indication: PRODUCT USED FOR UNKNOWN INDICATION
     Route: 048

REACTIONS (2)
  - DRUG ADMINISTRATION ERROR [None]
  - PRODUCT QUALITY ISSUE [None]
